FAERS Safety Report 10645852 (Version 1)
Quarter: 2014Q4

REPORT INFORMATION
  Report Type: Spontaneous
  Country: US (occurrence: None)
  Receive Date: 20141205
  Receipt Date: 20141205
  Transmission Date: 20150529
  Serious: Yes (Other)
  Sender: FDA-Public Use
  Company Number: 1000068110

PATIENT
  Sex: Female

DRUGS (1)
  1. NAMENDA [Suspect]
     Active Substance: MEMANTINE HYDROCHLORIDE
     Dates: start: 2011

REACTIONS (8)
  - Psychotic behaviour [None]
  - Drug ineffective [None]
  - Depressed mood [None]
  - Depression [None]
  - Libido increased [None]
  - Fatigue [None]
  - Anger [None]
  - Suicidal ideation [None]
